FAERS Safety Report 10200590 (Version 1)
Quarter: 2014Q2

REPORT INFORMATION
  Report Type: Spontaneous
  Country: US (occurrence: US)
  Receive Date: 20140528
  Receipt Date: 20140528
  Transmission Date: 20141212
  Serious: No
  Sender: FDA-Public Use
  Company Number: US-BIOGENIDEC-2014BI045018

PATIENT
  Age: 56 Year
  Sex: Female
  Weight: 113 kg

DRUGS (14)
  1. TECFIDERA [Suspect]
     Indication: MULTIPLE SCLEROSIS
     Route: 048
     Dates: start: 2014
  2. TECFIDERA [Suspect]
     Indication: MULTIPLE SCLEROSIS
     Route: 048
     Dates: start: 201402
  3. AMPYRA [Concomitant]
     Indication: GAIT DISTURBANCE
     Dates: start: 201012
  4. ADVIL [Concomitant]
  5. BACLOFEN [Concomitant]
  6. GLIMEPIRIDE [Concomitant]
  7. JANUMET [Concomitant]
  8. MOTRIN [Concomitant]
  9. ROPINIROLE [Concomitant]
  10. ROPINIROLE [Concomitant]
  11. SERTRALINE [Concomitant]
  12. TYLENOL [Concomitant]
  13. SIMVASTATIN [Concomitant]
  14. VITAMIN D [Concomitant]

REACTIONS (5)
  - Blood urine present [Unknown]
  - Urinary tract infection [Unknown]
  - Malaise [Recovered/Resolved]
  - Abdominal discomfort [Recovered/Resolved]
  - Flushing [Not Recovered/Not Resolved]
